FAERS Safety Report 5329694-3 (Version None)
Quarter: 2007Q2

REPORT INFORMATION
  Report Type: 
  Country: None (occurrence: None)
  Receive Date: 20070515
  Receipt Date: 20070508
  Transmission Date: 20071010
  Serious: Yes (Hospitalization, Other)
  Sender: FDA-Public Use
  Company Number: GXKR2007DE04056

PATIENT
  Age: 71 Year
  Sex: Female

DRUGS (2)
  1. AMOXIHEXAL (NGX) (AMOXICILLIN TRIHYDRATE)   FILM-COATED TABLET, 1000MG [Suspect]
     Indication: KIDNEY INFECTION
     Dosage: 1000 MG, TID, ORAL
     Route: 048
  2. MARCUMAR [Suspect]
     Dosage: ORAL
     Route: 048

REACTIONS (2)
  - DRUG INTERACTION [None]
  - PROTHROMBIN TIME PROLONGED [None]
